FAERS Safety Report 23065595 (Version 2)
Quarter: 2023Q4

REPORT INFORMATION
  Report Type: Spontaneous
  Country: US (occurrence: US)
  Receive Date: 20231014
  Receipt Date: 20231223
  Transmission Date: 20240109
  Serious: No
  Sender: FDA-Public Use
  Company Number: US-JNJFOC-20230950850

PATIENT
  Age: 95 Year
  Sex: Female

DRUGS (1)
  1. WOMENS ROGAINE UNSCENTED [Suspect]
     Active Substance: MINOXIDIL
     Indication: Alopecia
     Dosage: SMALLER THAN A GOLD BALL ONCE A DAY
     Route: 061
     Dates: start: 2020

REACTIONS (1)
  - Off label use [Unknown]

NARRATIVE: CASE EVENT DATE: 20200101
